FAERS Safety Report 12175380 (Version 2)
Quarter: 2016Q1

REPORT INFORMATION
  Report Type: Spontaneous
  Country: US (occurrence: US)
  Receive Date: 20160314
  Receipt Date: 20160315
  Transmission Date: 20160526
  Serious: Yes (Other)
  Sender: FDA-Public Use
  Company Number: US-009507513-1603USA005985

PATIENT
  Sex: Female

DRUGS (1)
  1. SINGULAIR [Suspect]
     Active Substance: MONTELUKAST SODIUM
     Indication: HYPERSENSITIVITY
     Dosage: 10MG/ONCE DAILY
     Route: 048
     Dates: start: 20151209, end: 20160309

REACTIONS (2)
  - Suicidal ideation [Recovering/Resolving]
  - Mood altered [Recovering/Resolving]
